FAERS Safety Report 9522073 (Version 3)
Quarter: 2014Q2

REPORT INFORMATION
  Report Type: Spontaneous
  Country: US (occurrence: US)
  Receive Date: 20130913
  Receipt Date: 20140507
  Transmission Date: 20141212
  Serious: Yes (Hospitalization)
  Sender: FDA-Public Use
  Company Number: US-PFIZER INC-2013260905

PATIENT
  Age: 59 Year
  Sex: Male
  Weight: 127 kg

DRUGS (25)
  1. MORPHINE SULFATE [Suspect]
     Indication: PAIN IN EXTREMITY
     Dosage: UNK
  2. LYRICA [Suspect]
     Indication: PAIN IN EXTREMITY
     Dosage: 600 MG, 3X/DAY
  3. LYRICA [Suspect]
     Indication: NEUROPATHY PERIPHERAL
     Dosage: 600 MG, 3X/DAY
     Dates: start: 2012
  4. LYRICA [Suspect]
     Dosage: 200 MG, 3X/DAY
     Dates: start: 201206
  5. PRIMIDONE [Suspect]
     Indication: TREMOR
     Dosage: UNK
  6. GAMUNEX [Suspect]
     Indication: CHRONIC INFLAMMATORY DEMYELINATING POLYRADICULONEUROPATHY
     Dosage: UNK
     Route: 042
  7. NEXIUM [Concomitant]
     Indication: BARRETT^S OESOPHAGUS
     Dosage: 40 MG, 2X/DAY
  8. NEXIUM [Concomitant]
     Dosage: 20 MG, DAILY
  9. PRISTIQ [Concomitant]
     Indication: DEPRESSION
     Dosage: 50 MG, 1X/DAY
  10. PRAVASTATIN [Concomitant]
     Indication: BLOOD CHOLESTEROL ABNORMAL
     Dosage: 80 MG, 1X/DAY
  11. PRAVASTATIN [Concomitant]
     Indication: BLOOD CHOLESTEROL INCREASED
     Dosage: 40 MG, 2X/DAY
  12. CENTRUM SILVER [Concomitant]
     Indication: VITAMIN SUPPLEMENTATION
     Dosage: UNK
  13. FISH OIL [Concomitant]
     Dosage: UNK
  14. CODEINE [Concomitant]
     Indication: PAIN IN EXTREMITY
     Dosage: UNK
     Dates: end: 201204
  15. METFORMIN [Concomitant]
     Indication: DIABETES MELLITUS
     Dosage: 500 MG, 4X/DAY
  16. METFORMIN [Concomitant]
     Dosage: 500 MG, 2X/DAY
  17. GLIPIZIDE [Concomitant]
     Indication: DIABETES MELLITUS
     Dosage: 5 MG, 1X/DAY
  18. GLIPIZIDE [Concomitant]
     Dosage: 5 MG, 2X/DAY
  19. ATENOLOL [Concomitant]
     Indication: HYPERTENSION
     Dosage: 12.5 MG, UNK
  20. ATENOLOL [Concomitant]
     Dosage: 50 MG, DAILY
  21. ENALAPRIL [Concomitant]
     Indication: HYPERTENSION
     Dosage: 5 MG, 1X/DAY
  22. ENALAPRIL [Concomitant]
     Dosage: 2.5 MG, DAILY
  23. ASPIRIN [Concomitant]
     Dosage: UNK
  24. VICODIN [Concomitant]
     Dosage: UNK
  25. EFEXOR XR [Concomitant]
     Dosage: 150 MG, DAILY

REACTIONS (4)
  - Lower limb fracture [Unknown]
  - Malaise [Unknown]
  - Thrombosis [Unknown]
  - Tinnitus [Unknown]
